FAERS Safety Report 10470386 (Version 1)
Quarter: 2014Q3

REPORT INFORMATION
  Report Type: Spontaneous
  Country: US (occurrence: None)
  Receive Date: 20140905
  Receipt Date: 20140905
  Transmission Date: 20150326
  Serious: Yes (Hospitalization)
  Sender: FDA-Public Use
  Company Number: A-US2014-100095

PATIENT
  Age: 25 Year
  Sex: Male

DRUGS (2)
  1. LETAIRIS [Suspect]
     Active Substance: AMBRISENTAN
  2. VELETRI [Suspect]
     Active Substance: EPOPROSTENOL
     Indication: PULMONARY ARTERIAL HYPERTENSION
     Dosage: PER MIN
     Route: 042
     Dates: start: 20140123

REACTIONS (2)
  - Device leakage [None]
  - Device breakage [None]

NARRATIVE: CASE EVENT DATE: 20140524
